FAERS Safety Report 16869062 (Version 1)
Quarter: 2019Q3

REPORT INFORMATION
  Report Type: Spontaneous
  Country: US (occurrence: US)
  Receive Date: 20190930
  Receipt Date: 20190930
  Transmission Date: 20191005
  Serious: No
  Sender: FDA-Public Use
  Company Number: US-JNJFOC-20190925469

PATIENT
  Age: 77 Year
  Sex: Female
  Weight: 59.93 kg

DRUGS (2)
  1. CHILDRENS ZYRTEC [Suspect]
     Active Substance: CETIRIZINE HYDROCHLORIDE
     Dosage: LAST DATE OF DRUG ADMINISTRATION: 17-SEP-2019
     Route: 048
  2. CHILDRENS ZYRTEC [Suspect]
     Active Substance: CETIRIZINE HYDROCHLORIDE
     Indication: SEASONAL ALLERGY
     Dosage: LAST DATE OF DRUG ADMINISTRATION: 17-SEP-2019
     Route: 048

REACTIONS (1)
  - Drug ineffective [Unknown]
